FAERS Safety Report 26134481 (Version 1)
Quarter: 2025Q4

REPORT INFORMATION
  Report Type: Spontaneous
  Country: AU (occurrence: AU)
  Receive Date: 20251209
  Receipt Date: 20251209
  Transmission Date: 20260118
  Serious: Yes (Other)
  Sender: Steriscience PTE
  Company Number: AU-STERISCIENCE B.V.-2025-ST-001686

PATIENT
  Age: 83 Year
  Sex: Female

DRUGS (9)
  1. SUCCINYLCHOLINE CHLORIDE [Interacting]
     Active Substance: SUCCINYLCHOLINE CHLORIDE
     Indication: Anaesthesia procedure
     Dosage: UNK
     Route: 065
  2. RIVASTIGMINE [Interacting]
     Active Substance: RIVASTIGMINE
     Indication: Dementia
     Dosage: 9.5 MILLIGRAM, QD
     Route: 065
     Dates: start: 201804
  3. THIOPENTAL SODIUM [Concomitant]
     Active Substance: THIOPENTAL SODIUM
     Indication: Anaesthesia procedure
     Dosage: UNK
     Route: 065
  4. DULOXETINE [Concomitant]
     Active Substance: DULOXETINE
     Indication: Depression
     Dosage: 60 MILLIGRAM
     Route: 065
  5. QUETIAPINE [Concomitant]
     Active Substance: QUETIAPINE
     Indication: Depression
     Dosage: 250 MILLIGRAM
     Route: 065
  6. LITHIUM [Concomitant]
     Active Substance: LITHIUM
     Indication: Depression
     Dosage: 375 MILLIGRAM
     Route: 065
  7. SEVOFLURANE [Concomitant]
     Active Substance: SEVOFLURANE
     Indication: Anaesthesia procedure
     Dosage: UNK
     Route: 065
  8. ROCURONIUM [Concomitant]
     Active Substance: ROCURONIUM BROMIDE
     Indication: Anaesthesia procedure
     Dosage: 30 MILLIGRAM
     Route: 065
  9. SUGAMMADEX [Concomitant]
     Active Substance: SUGAMMADEX
     Indication: Anaesthesia procedure
     Dosage: 200 MILLIGRAM
     Route: 065

REACTIONS (4)
  - Paralysis [None]
  - Apnoea [Unknown]
  - Drug interaction [Unknown]
  - Unmasking of previously unidentified disease [Unknown]
